FAERS Safety Report 23052092 (Version 2)
Quarter: 2023Q4

REPORT INFORMATION
  Report Type: Report from Study
  Country: ES (occurrence: ES)
  Receive Date: 20231010
  Receipt Date: 20231012
  Transmission Date: 20240109
  Serious: Yes (Hospitalization)
  Sender: FDA-Public Use
  Company Number: ES-GENMAB-2023-01830

PATIENT
  Age: 81 Year
  Sex: Male
  Weight: 85 kg

DRUGS (59)
  1. EPCORITAMAB [Suspect]
     Active Substance: EPCORITAMAB
     Indication: Diffuse large B-cell lymphoma stage IV
     Dosage: C1D1
     Route: 058
     Dates: start: 20230905, end: 20230905
  2. EPCORITAMAB [Suspect]
     Active Substance: EPCORITAMAB
     Dosage: RE-PRIME EPCORITAMAB DAY 1
     Route: 058
     Dates: start: 20230920, end: 20230920
  3. EPCORITAMAB [Suspect]
     Active Substance: EPCORITAMAB
     Dosage: RE-PRIME EPCORITAMAB DAY 8
     Route: 058
     Dates: start: 20230927, end: 20230927
  4. EPCORITAMAB [Suspect]
     Active Substance: EPCORITAMAB
     Dosage: ^RE-PRIME EPCORITAMAB DAY 15
     Route: 058
     Dates: start: 20231004
  5. LENALIDOMIDE [Suspect]
     Active Substance: LENALIDOMIDE
     Indication: Diffuse large B-cell lymphoma stage IV
     Dosage: UNK
     Route: 065
  6. POLARAMINE [Concomitant]
     Active Substance: DEXCHLORPHENIRAMINE MALEATE
     Indication: Premedication
     Dosage: 1 U, SINGLE
     Route: 042
     Dates: start: 20231004, end: 20231004
  7. ACETAMINOPHEN [Concomitant]
     Active Substance: ACETAMINOPHEN
     Indication: Premedication
     Dosage: 1 GRAM, SINGLE
     Route: 042
     Dates: start: 20231004, end: 20231004
  8. PREDNISONE [Concomitant]
     Active Substance: PREDNISONE
     Indication: Prophylaxis
     Dosage: 100 MILLIGRAM, QD
     Route: 048
     Dates: start: 20231004, end: 20231007
  9. DIOVAN [Concomitant]
     Active Substance: VALSARTAN
     Dosage: 160/12.5, QD
     Route: 048
     Dates: start: 2023, end: 20230912
  10. BISOPROLOL [Concomitant]
     Active Substance: BISOPROLOL\BISOPROLOL FUMARATE
     Indication: Prophylaxis
     Dosage: 5 MILLIGRAM, Q12H
     Route: 048
     Dates: start: 2023, end: 20230911
  11. BISOPROLOL [Concomitant]
     Active Substance: BISOPROLOL\BISOPROLOL FUMARATE
     Dosage: 2.5 MILLIGRAM, QD
     Route: 048
     Dates: start: 20230827
  12. BISOPROLOL [Concomitant]
     Active Substance: BISOPROLOL\BISOPROLOL FUMARATE
     Dosage: 2.5 MILLIGRAM, QD
     Route: 048
     Dates: start: 20230912, end: 20230918
  13. OMEPRAZOLE [Concomitant]
     Active Substance: OMEPRAZOLE
     Indication: Prophylaxis
     Route: 048
     Dates: start: 2023, end: 20230912
  14. OMEPRAZOLE [Concomitant]
     Active Substance: OMEPRAZOLE
     Dosage: 40 MILLIGRAM, QD
     Route: 042
     Dates: start: 20230912, end: 20230920
  15. FUROSEMIDE [Concomitant]
     Active Substance: FUROSEMIDE
     Indication: Prophylaxis
     Dosage: 20 MILLIGRAM, Q12H
     Route: 048
     Dates: start: 20230821, end: 20231006
  16. FUROSEMIDE [Concomitant]
     Active Substance: FUROSEMIDE
     Dosage: 20 MILLIGRAM, Q12H
     Route: 042
     Dates: start: 20230915, end: 20230922
  17. POTASSIUM CHLORIDE [Concomitant]
     Active Substance: POTASSIUM CHLORIDE
     Indication: Prophylaxis
     Dosage: 60 MILLIEQUIVALENT, QD
     Route: 042
     Dates: start: 20230821, end: 20230910
  18. POTASSIUM CHLORIDE [Concomitant]
     Active Substance: POTASSIUM CHLORIDE
     Dosage: 40 MILLIEQUIVALENT, QD
     Route: 042
     Dates: start: 20230912, end: 20230921
  19. POTASSIUM CHLORIDE [Concomitant]
     Active Substance: POTASSIUM CHLORIDE
     Dosage: 60 MILLIEQUIVALENT, QD
     Route: 042
     Dates: start: 20231005
  20. ACYCLOVIR [Concomitant]
     Active Substance: ACYCLOVIR
     Indication: Prophylaxis
     Dosage: 400 MILLIGRAM, QD
     Route: 048
     Dates: start: 20230824, end: 20230910
  21. ACYCLOVIR [Concomitant]
     Active Substance: ACYCLOVIR
     Dosage: 250 MILLIGRAM, QD
     Route: 042
     Dates: start: 20230912, end: 20230919
  22. ACYCLOVIR [Concomitant]
     Active Substance: ACYCLOVIR
     Dosage: 800 MILLIGRAM, QD
     Route: 048
     Dates: start: 20230920, end: 20231003
  23. ACYCLOVIR [Concomitant]
     Active Substance: ACYCLOVIR
     Dosage: 400 MILLIGRAM, Q12H
     Route: 048
     Dates: start: 20231003
  24. SULFAMETHOXAZOLE\TRIMETHOPRIM [Concomitant]
     Active Substance: SULFAMETHOXAZOLE\TRIMETHOPRIM
     Indication: Prophylaxis
     Dosage: 800 MILLIGRAM, Q12H
     Route: 048
     Dates: start: 20230824
  25. ENOXAPARIN [Concomitant]
     Active Substance: ENOXAPARIN
     Indication: Prophylaxis
     Dosage: 4000 INTERNATIONAL UNIT, QD
     Route: 058
     Dates: start: 20230824, end: 20230922
  26. GLUCOSALINE [Concomitant]
     Indication: Prophylaxis
     Dosage: 2500 MILLILITER, QD
     Route: 042
     Dates: start: 20230825, end: 20230910
  27. GLUCOSALINE [Concomitant]
     Dosage: 500 MILLILITER, QD
     Route: 042
     Dates: start: 20230912, end: 20230914
  28. GLUCOSALINE [Concomitant]
     Dosage: 2000 MILLILITER, QD
     Route: 042
     Dates: start: 20231005, end: 20231005
  29. GLUCOSALINE [Concomitant]
     Dosage: 1500 MILLILITER, QD
     Route: 042
     Dates: start: 20231005
  30. MAGNESIUM SULFATE [Concomitant]
     Active Substance: MAGNESIUM SULFATE
     Indication: Prophylaxis
     Dosage: 1500 MILLIGRAM, QD
     Route: 042
     Dates: start: 20230827, end: 20230910
  31. MAGNESIUM SULFATE [Concomitant]
     Active Substance: MAGNESIUM SULFATE
     Dosage: 1500 MILLIGRAM, QD
     Route: 042
     Dates: start: 20230915, end: 20230922
  32. ALLOPURINOL [Concomitant]
     Active Substance: ALLOPURINOL
     Indication: Prophylaxis
     Dosage: 100 MILLIGRAM, QD
     Route: 048
     Dates: start: 20230905
  33. SODIUM CHLORIDE [Concomitant]
     Active Substance: SODIUM CHLORIDE
     Indication: Prophylaxis
     Dosage: 1000 MILLILITER, QD
     Route: 042
     Dates: start: 20230906, end: 20230910
  34. SODIUM CHLORIDE [Concomitant]
     Active Substance: SODIUM CHLORIDE
     Indication: Pancreatitis
     Dosage: 500 MILLILITER, QD
     Route: 042
     Dates: start: 20230912, end: 20230921
  35. MEROPENEM [Concomitant]
     Active Substance: MEROPENEM
     Indication: Prophylaxis
     Dosage: 2000 MILLIGRAM, Q8H
     Route: 042
     Dates: start: 20230912, end: 20230922
  36. SUERO RINGER LACTATO VITULIA [Concomitant]
     Indication: Pancreatitis
     Dosage: 2000 MILLILITER, QD
     Route: 042
     Dates: start: 20230912, end: 20230914
  37. POLYETHYLENE GLYCOLS [Concomitant]
     Active Substance: POLYETHYLENE GLYCOLS
     Indication: Pancreatitis
     Dosage: 10 GRAM, Q8H
     Route: 048
     Dates: start: 20230912, end: 20230916
  38. POLYETHYLENE GLYCOLS [Concomitant]
     Active Substance: POLYETHYLENE GLYCOLS
     Indication: Prophylaxis
     Dosage: 10 MILLIGRAM, QD
     Route: 048
     Dates: start: 20230927
  39. NOREPINEPHRINE [Concomitant]
     Active Substance: NOREPINEPHRINE
     Indication: Pancreatitis
     Dosage: 20 MILLILITER, PRN
     Route: 042
     Dates: start: 20230912, end: 20230918
  40. MINERAL OIL [Concomitant]
     Active Substance: MINERAL OIL
     Indication: Prophylaxis
     Dosage: 7.17 GRAM, QD
     Route: 048
     Dates: start: 20230914, end: 20230922
  41. CALCIUM GLUCONATE [Concomitant]
     Active Substance: CALCIUM GLUCONATE
     Indication: Prophylaxis
     Dosage: 30 MILLILITER, QD
     Route: 042
     Dates: start: 20230914, end: 20230921
  42. CALCIUM GLUCONATE [Concomitant]
     Active Substance: CALCIUM GLUCONATE
     Dosage: 10 MILLILITER, QD
     Route: 042
     Dates: start: 20231005
  43. ALBUMIN HUMAN [Concomitant]
     Active Substance: ALBUMIN HUMAN
     Indication: Prophylaxis
     Dosage: 10 GRAM, Q12H
     Route: 042
     Dates: start: 20230915, end: 20230922
  44. FLUCONAZOLE [Concomitant]
     Active Substance: FLUCONAZOLE
     Indication: Pancreatitis
     Dosage: 200 MILLIGRAM, Q12H
     Route: 042
     Dates: start: 20230917, end: 20230921
  45. TEICOPLANIN [Concomitant]
     Active Substance: TEICOPLANIN
     Indication: Pancreatitis
     Dosage: 400 MILLIGRAM, QD
     Route: 042
     Dates: start: 20230917, end: 20230921
  46. AMIKACIN [Concomitant]
     Active Substance: AMIKACIN
     Indication: Pancreatitis
     Dosage: 500 MILLIGRAM, QD
     Route: 042
     Dates: start: 20230917, end: 20230919
  47. ORALDINE [Concomitant]
     Indication: Prophylaxis
     Dosage: UNK, QD
     Route: 048
     Dates: start: 20230822
  48. MYCOSTATIN [Concomitant]
     Active Substance: NYSTATIN
     Indication: Prophylaxis
     Dosage: UNK, QD
     Route: 048
     Dates: start: 20230922
  49. ENOXAPARIN SODIUM [Concomitant]
     Active Substance: ENOXAPARIN SODIUM
     Indication: Prophylaxis
     Dosage: 120 MILLIGRAM, QD
     Route: 048
     Dates: start: 20230922
  50. FILGRASTIM [Concomitant]
     Active Substance: FILGRASTIM
     Indication: Prophylaxis
     Dosage: 300 MICROGRAM, QD
     Route: 048
     Dates: start: 20230923, end: 20230924
  51. ALDACTONE [Concomitant]
     Active Substance: SPIRONOLACTONE
     Indication: Prophylaxis
     Dosage: 50 MILLIGRAM, QD
     Route: 048
     Dates: start: 20230827
  52. VALSARTAN [Concomitant]
     Active Substance: VALSARTAN
     Indication: Prophylaxis
     Dosage: 160 MILLIGRAM, QD
     Route: 048
     Dates: start: 20231003, end: 20231006
  53. NYSTATIN [Concomitant]
     Active Substance: NYSTATIN
     Indication: Prophylaxis
     Dosage: 5 MILLILITER, Q8H
     Route: 048
     Dates: start: 20231005
  54. CHLORHEXIDINE [Concomitant]
     Active Substance: CHLORHEXIDINE\CHLORHEXIDINE GLUCONATE
     Indication: Prophylaxis
     Dosage: 12 MILLILITER BUCAL, Q8H
     Dates: start: 20231005
  55. ALBUMIN HUMAN [Concomitant]
     Active Substance: ALBUMIN HUMAN
     Indication: Prophylaxis
     Dosage: 10 GRAM, Q8H
     Route: 042
     Dates: start: 20231005
  56. SODIUM CHLORIDE [Concomitant]
     Active Substance: SODIUM CHLORIDE
     Indication: Prophylaxis
     Dosage: 500 MILLILITER, QD
     Route: 042
     Dates: start: 20231005
  57. MAGNESIUM SULFATE [Concomitant]
     Active Substance: MAGNESIUM SULFATE
     Indication: Prophylaxis
     Dosage: 1500 MILLIGRAM, QD
     Route: 042
     Dates: start: 20231005
  58. PIPERACILLIN SODIUM\TAZOBACTAM SODIUM [Concomitant]
     Active Substance: PIPERACILLIN SODIUM\TAZOBACTAM SODIUM
     Indication: Prophylaxis
     Dosage: 4000 MILLIGRAM, Q6H
     Route: 042
     Dates: start: 20231006
  59. ACETAMINOPHEN [Concomitant]
     Active Substance: ACETAMINOPHEN
     Indication: Prophylaxis
     Dosage: 1 GRAM, PRN
     Route: 048
     Dates: start: 2023

REACTIONS (1)
  - Cytokine release syndrome [Recovered/Resolved]

NARRATIVE: CASE EVENT DATE: 20231005
